FAERS Safety Report 6027811-3 (Version None)
Quarter: 2009Q1

REPORT INFORMATION
  Report Type: 
  Country: None (occurrence: None)
  Receive Date: 20090105
  Receipt Date: 20090105
  Transmission Date: 20090719
  Serious: Yes (Death, Life-Threatening, Hospitalization, Disabling, Other)
  Sender: FDA-Public Use
  Company Number: JP-B.I. PHARMACEUTICALS,INC./RIDGEFIELD-2008-BP-12097NB

PATIENT
  Sex: Male
  Weight: 75 kg

DRUGS (2)
  1. MICARDIS [Suspect]
     Indication: HYPERTENSION
     Dosage: 40MG
     Route: 048
     Dates: start: 20070228, end: 20070608
  2. ASPIRIN [Concomitant]
     Dosage: 100MG
     Route: 048
     Dates: start: 19980801

REACTIONS (2)
  - GASTRIC CANCER [None]
  - GASTRIC HAEMORRHAGE [None]
